FAERS Safety Report 5697723-3 (Version None)
Quarter: 2008Q2

REPORT INFORMATION
  Report Type: 
  Country: None (occurrence: None)
  Receive Date: 20080408
  Receipt Date: 20080403
  Transmission Date: 20081010
  Serious: Yes (Life-Threatening)
  Sender: FDA-Public Use
  Company Number: B0514412A

PATIENT
  Age: 22 Year
  Sex: Female
  Weight: 42 kg

DRUGS (2)
  1. COMBIVIR [Suspect]
     Indication: ANTIVIRAL PROPHYLAXIS
     Dosage: 1TAB TWICE PER DAY
     Route: 048
     Dates: start: 20080306, end: 20080318
  2. LOPINAVIR AND RITONAVIR [Suspect]
     Indication: ANTIVIRAL PROPHYLAXIS
     Dosage: 2TAB TWICE PER DAY
     Route: 048
     Dates: start: 20080306, end: 20080318

REACTIONS (5)
  - ANAEMIA [None]
  - BLOOD AMYLASE INCREASED [None]
  - FOETAL MOVEMENTS DECREASED [None]
  - INTRA-UTERINE DEATH [None]
  - PLATELET COUNT DECREASED [None]
